FAERS Safety Report 24387957 (Version 1)
Quarter: 2024Q4

REPORT INFORMATION
  Report Type: Spontaneous
  Country: GB (occurrence: GB)
  Receive Date: 20241002
  Receipt Date: 20241002
  Transmission Date: 20250115
  Serious: Yes (Hospitalization, Other)
  Sender: PFIZER
  Company Number: GB-002147023-NVSC2024GB100951

PATIENT
  Age: 59 Year
  Sex: Male
  Weight: 91 kg

DRUGS (11)
  1. GEMCITABINE HYDROCHLORIDE [Suspect]
     Active Substance: GEMCITABINE HYDROCHLORIDE
     Indication: Pancreatic carcinoma metastatic
     Dosage: 1900 MG, QW
     Route: 042
     Dates: start: 20221130, end: 20240502
  2. PACLITAXEL [Suspect]
     Active Substance: PACLITAXEL
     Indication: Pancreatic carcinoma metastatic
     Dosage: 240 MG, QW
     Route: 042
     Dates: start: 20221130, end: 20240502
  3. CREON [Concomitant]
     Active Substance: PANCRELIPASE AMYLASE\PANCRELIPASE LIPASE\PANCRELIPASE PROTEASE
     Indication: Prophylaxis
     Dosage: UNK
  4. ASPIRIN [Concomitant]
     Active Substance: ASPIRIN
     Dosage: UNK
  5. BISOPROLOL [Concomitant]
     Active Substance: BISOPROLOL\BISOPROLOL FUMARATE
     Dosage: UNK
  6. LANSOPRAZOLE [Concomitant]
     Active Substance: LANSOPRAZOLE
     Dosage: UNK
  7. ATORVASTATIN [Concomitant]
     Active Substance: ATORVASTATIN
     Dosage: UNK
  8. RAMIPRIL [Concomitant]
     Active Substance: RAMIPRIL
     Dosage: UNK
  9. COCODAMOL [Concomitant]
     Active Substance: ACETAMINOPHEN\CODEINE PHOSPHATE
     Dosage: UNK
  10. DOCUSATE SODIUM [Concomitant]
     Active Substance: DOCUSATE SODIUM
     Dosage: UNK
  11. FUROSEMIDE [Concomitant]
     Active Substance: FUROSEMIDE
     Dosage: UNK

REACTIONS (2)
  - Anal abscess [Recovered/Resolved]
  - Off label use [Unknown]

NARRATIVE: CASE EVENT DATE: 20221130
